FAERS Safety Report 7934028 (Version 3)
Quarter: 2013Q4

REPORT INFORMATION
  Report Type: Spontaneous
  Country: FR (occurrence: FR)
  Receive Date: 20110506
  Receipt Date: 20131010
  Transmission Date: 20140711
  Serious: Yes (Hospitalization, Other)
  Sender: FDA-Public Use
  Company Number: FR-PFIZER INC-2011091341

PATIENT
  Age: 46 Year
  Sex: Male

DRUGS (4)
  1. LYRICA [Suspect]
     Indication: BACK PAIN
     Dosage: 75 MG, 2X/DAY
     Route: 048
     Dates: start: 20110204, end: 20110205
  2. INIPOMP [Suspect]
     Indication: PRODUCT USED FOR UNKNOWN INDICATION
     Dosage: 20 MG, 1X/DAY
     Route: 048
     Dates: start: 20110204, end: 20110204
  3. BI-PROFENID [Suspect]
     Indication: BACK PAIN
     Dosage: 1 DF, 2X/DAY
     Route: 048
     Dates: start: 20110204, end: 20110205
  4. MONOCRIXO [Suspect]
     Indication: BACK PAIN
     Dosage: 150 MG, 2X/DAY
     Route: 048
     Dates: start: 20110204, end: 20110204

REACTIONS (3)
  - Angioedema [Recovered/Resolved]
  - Dyspnoea [Recovered/Resolved]
  - Urticaria [Recovered/Resolved]
